FAERS Safety Report 9319986 (Version 1)
Quarter: 2013Q2

REPORT INFORMATION
  Report Type: Spontaneous
  Country: US (occurrence: US)
  Receive Date: 20130530
  Receipt Date: 20130530
  Transmission Date: 20140414
  Serious: Yes (Other)
  Sender: FDA-Public Use
  Company Number: US-ASTRAZENECA-2011SE49632

PATIENT
  Age: 56 Year
  Sex: Male

DRUGS (3)
  1. SYMBICORT PMDI [Suspect]
     Dosage: 160, UNKNOWN
     Route: 055
  2. SYMBICORT PMDI [Suspect]
     Dosage: 80, UNKNOWN
     Route: 055
  3. MELCHOL [Concomitant]

REACTIONS (5)
  - Pancreatic carcinoma [Unknown]
  - Diarrhoea [Recovered/Resolved]
  - Pain in extremity [Unknown]
  - Exostosis [Unknown]
  - Impaired work ability [Unknown]
